FAERS Safety Report 7179232-8 (Version None)
Quarter: 2010Q4

REPORT INFORMATION
  Report Type: 
  Country: None (occurrence: None)
  Receive Date: 20101217
  Receipt Date: 20101217
  Transmission Date: 20110411
  Serious: No
  Sender: FDA-Public Use
  Company Number: None

PATIENT
  Age: 67 Year
  Sex: Male
  Weight: 115.1 kg

DRUGS (1)
  1. BUPROPION [Suspect]
     Indication: SMOKING CESSATION THERAPY
     Dates: start: 20100525, end: 20100530

REACTIONS (3)
  - EXCORIATION [None]
  - FALL [None]
  - GAIT DISTURBANCE [None]
